FAERS Safety Report 4783485-0 (Version None)
Quarter: 2005Q3

REPORT INFORMATION
  Report Type: 
  Country: None (occurrence: None)
  Receive Date: 20050914
  Receipt Date: 20040920
  Transmission Date: 20060218
  Serious: Yes (Other)
  Sender: FDA-Public Use
  Company Number: 163-20785-04040497

PATIENT
  Age: 68 Year
  Sex: Female

DRUGS (1)
  1. THALOMID [Suspect]
     Indication: RENAL CELL CARCINOMA STAGE UNSPECIFIED
     Dosage: 100 MG, QHS, ORAL
     Route: 048
     Dates: start: 20030116

REACTIONS (2)
  - NERVE INJURY [None]
  - NEUROPATHY PERIPHERAL [None]
